FAERS Safety Report 24850369 (Version 3)
Quarter: 2025Q4

REPORT INFORMATION
  Report Type: Spontaneous
  Country: US (occurrence: US)
  Receive Date: 20250116
  Receipt Date: 20251022
  Transmission Date: 20260117
  Serious: Yes (Other)
  Sender: BLUEPRINT MEDICINES
  Company Number: US-Blueprint Medicines Corporation-2025-AER-00068

PATIENT
  Age: 68 Year
  Sex: Male

DRUGS (2)
  1. AYVAKIT [Suspect]
     Active Substance: AVAPRITINIB
     Indication: Systemic mastocytosis
     Dosage: 50 MG ON SUN, TUE, THU, SAT
     Route: 065
     Dates: start: 20240127
  2. AYVAKIT [Suspect]
     Active Substance: AVAPRITINIB
     Indication: Haematopoietic neoplasm
     Dosage: 25 MG DAILY ON MON, WED, FRI
     Route: 065
     Dates: start: 20240127

REACTIONS (13)
  - Pulmonary congestion [Unknown]
  - Swelling face [Unknown]
  - Musculoskeletal stiffness [Unknown]
  - Sinus congestion [Unknown]
  - Fatigue [Unknown]
  - Lacrimation increased [Unknown]
  - Visual impairment [Unknown]
  - Asthenia [Unknown]
  - Lethargy [Unknown]
  - Blood creatinine increased [Unknown]
  - Joint stiffness [Unknown]
  - Mobility decreased [Unknown]
  - Diarrhoea [Unknown]

NARRATIVE: CASE EVENT DATE: 20250101
